FAERS Safety Report 8218643-6 (Version None)
Quarter: 2012Q1

REPORT INFORMATION
  Report Type: 
  Country: None (occurrence: None)
  Receive Date: 20120319
  Receipt Date: 20120306
  Transmission Date: 20120608
  Serious: No
  Sender: FDA-Public Use
  Company Number: PHEH2012US005502

PATIENT
  Sex: Female
  Weight: 57.143 kg

DRUGS (13)
  1. SYNTHROID [Concomitant]
     Dosage: 100 MCG
  2. NEURONTIN [Concomitant]
     Dosage: 100 MG, UNK
  3. MUCINEX [Concomitant]
     Dosage: 60 MG, UNK
  4. VAGIFEM [Concomitant]
     Dosage: 10 MCG
  5. AMBIEN CR [Concomitant]
     Dosage: 12.5 MG, UNK
  6. ZYRTEC [Concomitant]
     Dosage: 10 MG, UNK
  7. TASIGNA [Suspect]
     Dosage: 300 MG, Q12H
     Route: 048
  8. CALCITRIOL [Concomitant]
     Dosage: 0.25 MCG
  9. SINGULAIR [Concomitant]
     Dosage: 10 MG, UNK
  10. NASONEX [Concomitant]
     Dosage: 50 MCQ
  11. FLEXERIL [Concomitant]
     Dosage: 10 MG, UNK
  12. NEXIUM [Concomitant]
     Dosage: 20 MG, UNK
  13. FOLIC ACID [Concomitant]
     Dosage: 20 MG, UNK

REACTIONS (1)
  - ALOPECIA [None]
